FAERS Safety Report 9416814 (Version 2)
Quarter: 2013Q3

REPORT INFORMATION
  Report Type: Spontaneous
  Country: BR (occurrence: BR)
  Receive Date: 20130724
  Receipt Date: 20130726
  Transmission Date: 20140515
  Serious: Yes (Death, Hospitalization)
  Sender: FDA-Public Use
  Company Number: BR-SANOFI-AVENTIS-2013SA073807

PATIENT
  Sex: Female

DRUGS (3)
  1. LANTUS [Suspect]
     Indication: TYPE 2 DIABETES MELLITUS
     Route: 058
     Dates: start: 2003, end: 20130703
  2. CLIKSTAR [Concomitant]
     Indication: DEVICE THERAPY
     Dates: end: 20130703
  3. NOVORAPID [Concomitant]
     Route: 058
     Dates: end: 20130703

REACTIONS (2)
  - Renal failure [Fatal]
  - Lung disorder [Fatal]
